FAERS Safety Report 8282639-9 (Version None)
Quarter: 2012Q2

REPORT INFORMATION
  Report Type: 
  Country: None (occurrence: None)
  Receive Date: 20120413
  Receipt Date: 20120405
  Transmission Date: 20120825
  Serious: No
  Sender: FDA-Public Use
  Company Number: US-PFIZER INC-2012088054

PATIENT

DRUGS (13)
  1. ORUDIS [Suspect]
     Dosage: UNK
  2. BENZOIN [Suspect]
     Dosage: UNK
  3. CODEINE SULFATE [Suspect]
     Dosage: UNK
  4. SYNVISC [Suspect]
     Dosage: UNK
  5. LEVOXYL [Suspect]
     Dosage: UNK
  6. DARVOCET [Suspect]
     Dosage: UNK
  7. DARVON [Suspect]
     Dosage: UNK
  8. LODINE [Suspect]
     Dosage: UNK
  9. TALWIN [Suspect]
     Dosage: UNK
  10. VICODIN [Suspect]
     Dosage: UNK
  11. CAPSAICIN [Suspect]
     Dosage: UNK
  12. PERCODAN-DEMI [Suspect]
     Dosage: UNK
  13. DEMEROL [Suspect]
     Dosage: UNK

REACTIONS (4)
  - ARTHRALGIA [None]
  - ARTHRITIS [None]
  - RASH [None]
  - RASH ERYTHEMATOUS [None]
